FAERS Safety Report 11995694 (Version 1)
Quarter: 2016Q1

REPORT INFORMATION
  Report Type: Spontaneous
  Country: GB (occurrence: GB)
  Receive Date: 20160203
  Receipt Date: 20160203
  Transmission Date: 20160526
  Serious: Yes (Life-Threatening)
  Sender: FDA-Public Use
  Company Number: GB-BECTON DICKINSON-2016BDN00003

PATIENT

DRUGS (3)
  1. CHLORAPREP [Suspect]
     Active Substance: CHLORHEXIDINE GLUCONATE\ISOPROPYL ALCOHOL
     Indication: INFECTION PROPHYLAXIS
     Route: 061
  2. ARROWG+ARD BLUE [Suspect]
     Active Substance: DEVICE
     Indication: CENTRAL VENOUS CATHETERISATION
     Dosage: PRODUCT ^INSERTED^, ONCE
     Route: 042
  3. 2% CHLORHEXIDINE SOLUTION [Suspect]
     Active Substance: CHLORHEXIDINE
     Indication: INFECTION PROPHYLAXIS
     Route: 061

REACTIONS (2)
  - Anaphylactic reaction [Recovered/Resolved]
  - Hypotension [None]
